FAERS Safety Report 9846211 (Version 3)
Quarter: 2014Q1

REPORT INFORMATION
  Report Type: Report from Study
  Country: JP (occurrence: JP)
  Receive Date: 20140127
  Receipt Date: 20140212
  Transmission Date: 20141002
  Serious: Yes (Hospitalization)
  Sender: FDA-Public Use
  Company Number: JP-PFIZER INC-2014018882

PATIENT
  Age: 70 Year
  Sex: Female
  Weight: 50.6 kg

DRUGS (10)
  1. CRIZOTINIB [Suspect]
     Indication: NON-SMALL CELL LUNG CANCER
     Dosage: 250 MG, 2X/DAY
     Route: 048
     Dates: start: 20130606, end: 20130619
  2. CRIZOTINIB [Suspect]
     Dosage: 250 MG, 2X/DAY
     Route: 048
     Dates: start: 20130627, end: 20130710
  3. CRIZOTINIB [Suspect]
     Dosage: 250 MG, 2X/DAY
     Route: 048
     Dates: start: 20130718, end: 20130731
  4. CRIZOTINIB [Suspect]
     Dosage: 250 MG, 2X/DAY
     Route: 048
     Dates: start: 20130808, end: 20130925
  5. ASPARA-CA [Concomitant]
     Dosage: 200 MG, 3X/DAY
     Route: 048
  6. ALFAROL [Concomitant]
     Dosage: 1 UG, 1X/DAY
     Route: 048
  7. PREDNISOLONE [Concomitant]
     Dosage: 7.5 MG, 1X/DAY
     Route: 048
  8. WARFARIN [Concomitant]
     Dosage: 2 MG, 1X/DAY
     Route: 048
  9. OLMETEC [Concomitant]
     Dosage: 20 MG, 1X/DAY
     Route: 048
  10. PRIMPERAN [Concomitant]
     Indication: NAUSEA
     Dosage: 5 MG, 3X/DAY
     Route: 048
     Dates: start: 20130606, end: 20130925

REACTIONS (1)
  - Urinary tract infection [Recovering/Resolving]
